FAERS Safety Report 6298693-X (Version None)
Quarter: 2009Q3

REPORT INFORMATION
  Report Type: 
  Country: None (occurrence: None)
  Receive Date: 20090806
  Receipt Date: 20070703
  Transmission Date: 20100115
  Serious: Yes (Other)
  Sender: FDA-Public Use
  Company Number: US-ASTRAZENECA-2007UW02029

PATIENT
  Age: 554 Month
  Sex: Female
  Weight: 108.9 kg

DRUGS (15)
  1. SEROQUEL [Suspect]
     Indication: INSOMNIA
     Route: 048
     Dates: start: 20041001, end: 20060301
  2. SEROQUEL [Suspect]
     Indication: MAJOR DEPRESSION
     Route: 048
     Dates: start: 20041001, end: 20060301
  3. SEROQUEL [Suspect]
     Dosage: 100MG-300MG
     Route: 048
     Dates: start: 20041008
  4. SEROQUEL [Suspect]
     Dosage: 100MG-300MG
     Route: 048
     Dates: start: 20041008
  5. ZYPREXA [Concomitant]
     Dates: start: 20020101, end: 20041101
  6. ZYPREXA [Concomitant]
     Dosage: 10MG-25MG
  7. LIBRIUM [Concomitant]
     Indication: ANXIETY
     Dosage: STRENGTH 25MG.  DOSE 75MG-100MG
  8. LIBRIUM [Concomitant]
     Indication: PANIC ATTACK
     Dosage: STRENGTH 25MG.  DOSE 75MG-100MG
  9. BUSPAR [Concomitant]
     Dosage: STRENGTH 15MG.  DOSE 30MG-45MG
     Route: 048
  10. EFFEXOR [Concomitant]
     Dosage: STRENGTH 75MG-150MG
     Route: 048
  11. EFFEXOR [Concomitant]
     Route: 048
  12. PAXIL [Concomitant]
  13. LITHIUM [Concomitant]
     Dosage: 25 MG IN MORNING, 50 MG AT NIGHT
  14. ACETAMINOPHEN [Concomitant]
  15. TRAMADOL HCL [Concomitant]

REACTIONS (2)
  - NEUROPATHY PERIPHERAL [None]
  - TYPE 2 DIABETES MELLITUS [None]
